FAERS Safety Report 6672062-2 (Version None)
Quarter: 2010Q2

REPORT INFORMATION
  Report Type: 
  Country: None (occurrence: None)
  Receive Date: 20100406
  Receipt Date: 20100216
  Transmission Date: 20101027
  Serious: Yes (Hospitalization, Other)
  Sender: FDA-Public Use
  Company Number: UK-ACCORD-001871

PATIENT
  Age: 14 Year
  Sex: Female

DRUGS (4)
  1. MYCOPHENOLATE MOFETIL [Suspect]
     Indication: RENAL TRANSPLANT
     Dosage: 200.00-MG/M2
  2. PREDNISONE TAB [Concomitant]
  3. TACROLIMUS [Concomitant]
  4. RANITIDINE [Concomitant]

REACTIONS (3)
  - CROHN'S DISEASE [None]
  - DRUG TOXICITY [None]
  - PLATELET COUNT INCREASED [None]
